FAERS Safety Report 14112032 (Version 1)
Quarter: 2017Q4

REPORT INFORMATION
  Report Type: Spontaneous
  Country: DE (occurrence: DE)
  Receive Date: 20171020
  Receipt Date: 20171020
  Transmission Date: 20180321
  Serious: Yes (Other)
  Sender: FDA-Public Use
  Company Number: DE-ASTRAZENECA-2017SF06580

PATIENT
  Age: 36 Year
  Sex: Female

DRUGS (2)
  1. FASLODEX [Suspect]
     Active Substance: FULVESTRANT
     Dosage: 500 MG, Q DAY 29
     Route: 030
     Dates: start: 201702
  2. IBRANCE [Suspect]
     Active Substance: PALBOCICLIB
     Dosage: 125 MG, CYCLIC (1-21 Q DAY)
     Route: 048
     Dates: start: 201702

REACTIONS (4)
  - Haemoglobin decreased [Unknown]
  - Neutropenia [Unknown]
  - Fatigue [Unknown]
  - Off label use [Unknown]
